FAERS Safety Report 25965965 (Version 1)
Quarter: 2025Q4

REPORT INFORMATION
  Report Type: Report from Study
  Country: US (occurrence: US)
  Receive Date: 20251028
  Receipt Date: 20251028
  Transmission Date: 20260118
  Serious: Yes (Hospitalization)
  Sender: JAZZ
  Company Number: US-JAZZ PHARMACEUTICALS-2025-US-024286

PATIENT
  Sex: Female

DRUGS (1)
  1. EPIDIOLEX [Suspect]
     Active Substance: CANNABIDIOL
     Indication: Lennox-Gastaut syndrome
     Dosage: 4 MILLILITER IN THE MORNING AND 4.5 MILLILITER EVERY NIGHT
     Dates: start: 201902

REACTIONS (1)
  - Hospitalisation [Unknown]
